FAERS Safety Report 6230108-X (Version None)
Quarter: 2009Q2

REPORT INFORMATION
  Report Type: 
  Country: None (occurrence: None)
  Receive Date: 20090615
  Receipt Date: 20090601
  Transmission Date: 20091009
  Serious: Yes (Hospitalization)
  Sender: FDA-Public Use
  Company Number: US-GENENTECH-281698

PATIENT
  Sex: Female

DRUGS (2)
  1. LUCENTIS [Suspect]
     Indication: MACULAR DEGENERATION
  2. AVASTIN [Suspect]
     Indication: MACULAR DEGENERATION

REACTIONS (2)
  - DYSPNOEA [None]
  - PHARYNGITIS [None]
